FAERS Safety Report 6375226-0 (Version None)
Quarter: 2009Q3

REPORT INFORMATION
  Report Type: 
  Country: None (occurrence: None)
  Receive Date: 20090921
  Receipt Date: 20090921
  Transmission Date: 20100115
  Serious: Yes (Other)
  Sender: FDA-Public Use
  Company Number: None

PATIENT
  Age: 56 Year
  Sex: Male
  Weight: 77.1115 kg

DRUGS (1)
  1. ZICAM NORMAL MATRIXX [Suspect]
     Indication: NASOPHARYNGITIS
     Dosage: ONE 4 HOURS NASAL
     Route: 045
     Dates: start: 20040101, end: 20080415

REACTIONS (2)
  - ANOSMIA [None]
  - HYPOGEUSIA [None]
